FAERS Safety Report 14422583 (Version 4)
Quarter: 2018Q3

REPORT INFORMATION
  Report Type: Report from Study
  Country: CA (occurrence: CA)
  Receive Date: 20180123
  Receipt Date: 20180731
  Transmission Date: 20181010
  Serious: Yes (Other)
  Sender: FDA-Public Use
  Company Number: CA-BRISTOL-MYERS SQUIBB COMPANY-BMS-2017-027328

PATIENT
  Age: 51 Year
  Sex: Male

DRUGS (1)
  1. ABATACEPT [Suspect]
     Active Substance: ABATACEPT
     Indication: RHEUMATOID ARTHRITIS
     Dosage: 750 MG, Q4WK
     Route: 042
     Dates: start: 20110328

REACTIONS (15)
  - Diarrhoea haemorrhagic [Not Recovered/Not Resolved]
  - Blood pressure increased [Recovered/Resolved]
  - Skin lesion [Recovered/Resolved]
  - Defaecation urgency [Unknown]
  - Crohn^s disease [Unknown]
  - Musculoskeletal pain [Not Recovered/Not Resolved]
  - Inappropriate schedule of drug administration [Recovering/Resolving]
  - Pain [Recovered/Resolved]
  - Arthralgia [Not Recovered/Not Resolved]
  - Procedural nausea [Recovered/Resolved]
  - Abdominal pain [Unknown]
  - Back pain [Unknown]
  - Infusion related reaction [Recovered/Resolved]
  - Acne [Recovered/Resolved]
  - Vomiting [Recovered/Resolved]

NARRATIVE: CASE EVENT DATE: 20170720
